FAERS Safety Report 15883225 (Version 1)
Quarter: 2019Q1

REPORT INFORMATION
  Report Type: Spontaneous
  Country: FR (occurrence: FR)
  Receive Date: 20190129
  Receipt Date: 20190129
  Transmission Date: 20190417
  Serious: Yes (Other)
  Sender: FDA-Public Use
  Company Number: FR-TEVA-2019-FR-1002959

PATIENT
  Age: 43 Year
  Sex: Male
  Weight: 70 kg

DRUGS (2)
  1. TRAMADOL (CHLORHYDRATE DE) [Suspect]
     Active Substance: TRAMADOL HYDROCHLORIDE
     Indication: PAIN
     Route: 048
     Dates: start: 20161202, end: 20161202
  2. KARDEGIC [Suspect]
     Active Substance: ASPIRIN DL-LYSINE
     Indication: TRANSIENT ISCHAEMIC ATTACK
     Dosage: 1 DOSAGE FORMS DAILY;
     Route: 048
     Dates: start: 20161202, end: 20161202

REACTIONS (2)
  - Rash erythematous [Recovered/Resolved]
  - Pruritus [Recovered/Resolved]

NARRATIVE: CASE EVENT DATE: 20161202
